FAERS Safety Report 6107469-5 (Version None)
Quarter: 2009Q1

REPORT INFORMATION
  Report Type: 
  Country: None (occurrence: None)
  Receive Date: 20090309
  Receipt Date: 20090226
  Transmission Date: 20090719
  Serious: Yes (Hospitalization)
  Sender: FDA-Public Use
  Company Number: DE-AVENTIS-200910542DE

PATIENT
  Age: 92 Year
  Sex: Female
  Weight: 85 kg

DRUGS (9)
  1. CLEXANE [Suspect]
     Indication: PULMONARY EMBOLISM
     Route: 058
     Dates: end: 20081030
  2. FUROSEMIDE [Suspect]
     Route: 048
  3. SPIRONOLACTONE [Suspect]
     Route: 048
  4. ARICEPT [Concomitant]
     Indication: DEMENTIA
     Route: 048
  5. ATACAND [Concomitant]
     Dosage: DOSE: 16 MG, ORAL 2 IN DAY
     Route: 048
  6. EUNERPAN [Concomitant]
     Indication: DEMENTIA
     Route: 048
  7. MOVICOL                            /01053601/ [Concomitant]
     Indication: CONSTIPATION
     Dosage: DOSE: NOT REPORTED
  8. NORVASC [Concomitant]
     Dosage: DOSE: 5 MG, ORAL 2 IN DAY
     Route: 048
  9. PANTOZOL                           /01263202/ [Concomitant]
     Route: 048

REACTIONS (4)
  - ANAEMIA [None]
  - HAEMATOMA [None]
  - HYPERKALAEMIA [None]
  - HYPONATRAEMIA [None]
